FAERS Safety Report 23566436 (Version 1)
Quarter: 2024Q1

REPORT INFORMATION
  Report Type: Spontaneous
  Country: US (occurrence: US)
  Receive Date: 20240226
  Receipt Date: 20240226
  Transmission Date: 20240409
  Serious: No
  Sender: FDA-Public Use
  Company Number: US-AMNEAL PHARMACEUTICALS-2023-AMRX-00104

PATIENT
  Age: 74 Year
  Sex: Male

DRUGS (9)
  1. RYTARY [Suspect]
     Active Substance: CARBIDOPA\LEVODOPA
     Indication: Product used for unknown indication
     Route: 048
  2. MIDODRINE HYDROCHLORIDE [Suspect]
     Active Substance: MIDODRINE HYDROCHLORIDE
     Indication: Product used for unknown indication
  3. NUPLAZID [Suspect]
     Active Substance: PIMAVANSERIN TARTRATE
     Indication: Parkinson^s disease
     Dosage: CAPSULE, 34 MILLIGRAM, QD
     Route: 048
     Dates: start: 202102
  4. NUPLAZID [Suspect]
     Active Substance: PIMAVANSERIN TARTRATE
     Indication: Hallucination
     Dosage: 34 MILLIGRAM, QD
     Route: 048
  5. NUPLAZID [Suspect]
     Active Substance: PIMAVANSERIN TARTRATE
     Dosage: TABLET, 10 MILLIGRAM, QD
     Route: 048
  6. NUPLAZID [Suspect]
     Active Substance: PIMAVANSERIN TARTRATE
     Dosage: TABLET, 10 MILLIGRAM, QD, IN THE EVENING;
     Route: 048
  7. OLANZAPINE [Suspect]
     Active Substance: OLANZAPINE
     Indication: Product used for unknown indication
  8. FLUDROCORTISONE ACETATE [Concomitant]
     Active Substance: FLUDROCORTISONE ACETATE
  9. SEROQUEL [Concomitant]
     Active Substance: QUETIAPINE FUMARATE

REACTIONS (10)
  - Hallucination [Not Recovered/Not Resolved]
  - Blood pressure decreased [Unknown]
  - Cough [Unknown]
  - Fatigue [Unknown]
  - Gait inability [Unknown]
  - Insomnia [Unknown]
  - Memory impairment [Unknown]
  - Paranoia [Unknown]
  - Viral infection [Unknown]
  - Anxiety [Unknown]

NARRATIVE: CASE EVENT DATE: 20221201
